FAERS Safety Report 8146594-4 (Version None)
Quarter: 2012Q1

REPORT INFORMATION
  Report Type: 
  Country: None (occurrence: None)
  Receive Date: 20120217
  Receipt Date: 20110526
  Transmission Date: 20120608
  Serious: No
  Sender: FDA-Public Use
  Company Number: US-ABBOTT-11P-163-0728716-00

PATIENT
  Sex: Male
  Weight: 81.72 kg

DRUGS (1)
  1. SIMCOR [Suspect]
     Indication: BLOOD CHOLESTEROL
     Dosage: 500/20 MG AT BEDTIME
     Route: 048
     Dates: start: 20110525

REACTIONS (1)
  - CHILLS [None]
